FAERS Safety Report 21372317 (Version 2)
Quarter: 2022Q4

REPORT INFORMATION
  Report Type: Spontaneous
  Country: US (occurrence: None)
  Receive Date: 20220924
  Receipt Date: 20221108
  Transmission Date: 20230112
  Serious: No
  Sender: FDA-Public Use
  Company Number: 2022A313107

PATIENT
  Sex: Female
  Weight: 59 kg

DRUGS (1)
  1. TEZSPIRE [Suspect]
     Active Substance: TEZEPELUMAB-EKKO
     Indication: Asthma
     Route: 058
     Dates: start: 202203

REACTIONS (2)
  - Arthritis [Not Recovered/Not Resolved]
  - Scar [Not Recovered/Not Resolved]
